FAERS Safety Report 8234367-3 (Version None)
Quarter: 2012Q1

REPORT INFORMATION
  Report Type: 
  Country: None (occurrence: None)
  Receive Date: 20120326
  Receipt Date: 20120325
  Transmission Date: 20120608
  Serious: Yes (Other)
  Sender: FDA-Public Use
  Company Number: RU-ROCHE-1052367

PATIENT
  Sex: Female

DRUGS (4)
  1. RIBAVIRIN [Suspect]
     Indication: HEPATITIS C
  2. PEGASYS [Suspect]
     Indication: HEPATITIS C
  3. PEGASYS [Suspect]
     Indication: HEPATITIS B
     Route: 058
  4. RIBAVIRIN [Suspect]
     Indication: HEPATITIS B

REACTIONS (4)
  - NAUSEA [None]
  - STOMATITIS [None]
  - SINUSITIS [None]
  - FATIGUE [None]
